FAERS Safety Report 6537702-7 (Version None)
Quarter: 2009Q4

REPORT INFORMATION
  Report Type: 
  Country: None (occurrence: None)
  Receive Date: 20091229
  Receipt Date: 20091014
  Transmission Date: 20100525
  Serious: No
  Sender: FDA-Public Use
  Company Number: 1000009464

PATIENT
  Age: 69 Year
  Sex: Female

DRUGS (2)
  1. BYSTOLIC [Suspect]
     Indication: HYPERTENSION
     Dosage: 5 MG (5 MG,1 IN 1 D),ORAL
     Route: 048
     Dates: start: 20090601
  2. VITAMINS (NOS) [Concomitant]

REACTIONS (1)
  - ABDOMINAL DISTENSION [None]
